FAERS Safety Report 6862767-2 (Version None)
Quarter: 2010Q3

REPORT INFORMATION
  Report Type: 
  Country: None (occurrence: None)
  Receive Date: 20100721
  Receipt Date: 20100712
  Transmission Date: 20110219
  Serious: Yes (Other)
  Sender: FDA-Public Use
  Company Number: US-ROCHE-715829

PATIENT
  Age: 19 Year
  Sex: Female

DRUGS (3)
  1. MYCOPHENOLATE MOFETIL [Suspect]
     Indication: LUPUS NEPHRITIS
     Dosage: CO-INDICATION: SYSTEMIC LUPUS ERYTHEMATOSUS
     Route: 065
  2. FK506 [Suspect]
     Indication: LUPUS NEPHRITIS
     Dosage: CO-INDICATION: SYSTEMIC LUPUS ERYTHEMATOSUS
     Route: 065
  3. PREDNISONE [Suspect]
     Indication: LUPUS NEPHRITIS
     Dosage: CO-INDICATION: SYSTEMIC LUPUS ERYTHEMATOSUS
     Route: 065

REACTIONS (4)
  - ARTHRITIS BACTERIAL [None]
  - BLOOD CHOLESTEROL INCREASED [None]
  - DIABETIC KETOACIDOSIS [None]
  - TREATMENT FAILURE [None]
